FAERS Safety Report 7825660-4 (Version None)
Quarter: 2011Q4

REPORT INFORMATION
  Report Type: 
  Country: None (occurrence: None)
  Receive Date: 20111017
  Receipt Date: 20091006
  Transmission Date: 20120403
  Serious: No
  Sender: FDA-Public Use
  Company Number: 2009020858

PATIENT
  Age: 62 Year

DRUGS (1)
  1. CYTOGAM [Suspect]
     Indication: PROPHYLAXIS AGAINST TRANSPLANT REJECTION
     Dosage: (80 G, 80 G  (AS REPORTED) INTRAVENOUS (NOT OTHERWISE SPECIFIED))
     Route: 042

REACTIONS (4)
  - VOMITING [None]
  - NAUSEA [None]
  - HEADACHE [None]
  - MENINGITIS ASEPTIC [None]
